FAERS Safety Report 7877686-2 (Version None)
Quarter: 2011Q4

REPORT INFORMATION
  Report Type: 
  Country: None (occurrence: None)
  Receive Date: 20111031
  Receipt Date: 20111031
  Transmission Date: 20120403
  Serious: Yes (Life-Threatening)
  Sender: FDA-Public Use
  Company Number: None

PATIENT
  Sex: Female
  Weight: 64.41 kg

DRUGS (4)
  1. LOVASTATIN [Suspect]
     Indication: THROMBOSIS PROPHYLAXIS
     Dosage: 1 TABLET
     Route: 048
     Dates: start: 20110907, end: 20111004
  2. LOVASTATIN [Suspect]
     Indication: CEREBROVASCULAR ACCIDENT PROPHYLAXIS
     Dosage: 1 TABLET
     Route: 048
     Dates: start: 20110907, end: 20111004
  3. PLAVIX [Concomitant]
     Indication: THROMBOSIS PROPHYLAXIS
     Dosage: 1 TABLET
     Route: 048
     Dates: start: 20110907, end: 20111004
  4. PLAVIX [Concomitant]
     Indication: CEREBROVASCULAR ACCIDENT PROPHYLAXIS
     Dosage: 1 TABLET
     Route: 048
     Dates: start: 20110907, end: 20111004

REACTIONS (4)
  - MIDDLE INSOMNIA [None]
  - HYPOAESTHESIA [None]
  - NOCTURNAL DYSPNOEA [None]
  - PARAESTHESIA [None]
